FAERS Safety Report 12382959 (Version 1)
Quarter: 2016Q2

REPORT INFORMATION
  Report Type: Spontaneous
  Country: US (occurrence: US)
  Receive Date: 20160518
  Receipt Date: 20160518
  Transmission Date: 20160815
  Serious: No
  Sender: FDA-Public Use
  Company Number: US-MDT-ADR-2016-00159

PATIENT
  Age: 49 Year
  Sex: Female

DRUGS (3)
  1. LYRICA [Suspect]
     Active Substance: PREGABALIN
  2. CELEBREX [Suspect]
     Active Substance: CELECOXIB
  3. BACLOFEN. [Suspect]
     Active Substance: BACLOFEN
     Route: 037

REACTIONS (8)
  - Back pain [Unknown]
  - Medical device site discomfort [Unknown]
  - Pain in extremity [Unknown]
  - Weight increased [Unknown]
  - Stress [Unknown]
  - Swelling [Unknown]
  - Medical device site inflammation [Unknown]
  - Movement disorder [Unknown]
